FAERS Safety Report 6295267-1 (Version None)
Quarter: 2009Q3

REPORT INFORMATION
  Report Type: 
  Country: None (occurrence: None)
  Receive Date: 20090803
  Receipt Date: 20090731
  Transmission Date: 20100115
  Serious: No
  Sender: FDA-Public Use
  Company Number: US-B.I. PHARMACEUTICALS,INC./RIDGEFIELD-2009-BP-08271BP

PATIENT
  Sex: Male

DRUGS (13)
  1. SPIRIVA [Suspect]
     Indication: EMPHYSEMA
     Dosage: 18 MCG
     Route: 055
     Dates: start: 20070101
  2. SPIRIVA [Suspect]
     Indication: WHEEZING
  3. SPIRIVA [Suspect]
     Indication: DYSPNOEA
  4. COMBIVENT [Concomitant]
     Indication: EMPHYSEMA
     Route: 055
  5. COMBIVENT [Concomitant]
     Indication: WHEEZING
  6. OMEPRAZOLE [Concomitant]
     Indication: DYSPEPSIA
     Dates: start: 20060101
  7. OMEPRAZOLE [Concomitant]
     Indication: GASTROOESOPHAGEAL REFLUX DISEASE
  8. UNSPECIFIED SINUS MEDICATION [Concomitant]
     Indication: SINUSITIS
  9. UNSPECIFIED ANTIHYPERTENSIVE [Concomitant]
  10. MICARDIS [Concomitant]
     Indication: BLOOD PRESSURE ABNORMAL
  11. MIRALAX [Concomitant]
     Indication: INTESTINAL FUNCTIONAL DISORDER
  12. CEFUROXIME AXETIL [Concomitant]
  13. MUCINEX [Concomitant]

REACTIONS (5)
  - COUGH [None]
  - INCREASED UPPER AIRWAY SECRETION [None]
  - OROPHARYNGEAL PAIN [None]
  - PRODUCTIVE COUGH [None]
  - UPPER RESPIRATORY TRACT INFECTION [None]
